FAERS Safety Report 12879414 (Version 1)
Quarter: 2016Q4

REPORT INFORMATION
  Report Type: Spontaneous
  Country: US (occurrence: US)
  Receive Date: 20161025
  Receipt Date: 20161025
  Transmission Date: 20170207
  Serious: No
  Sender: FDA-Public Use
  Company Number: US-TAKEDA-2016TUS019231

PATIENT
  Age: 8 Year
  Sex: Male
  Weight: 24.36 kg

DRUGS (4)
  1. COLCRYS [Suspect]
     Active Substance: COLCHICINE
     Indication: FAMILIAL MEDITERRANEAN FEVER
     Dosage: 0.6 MG, QD
     Route: 048
     Dates: start: 20160413, end: 20160516
  2. COLCRYS [Suspect]
     Active Substance: COLCHICINE
     Dosage: 1.2 MG, QD
     Route: 048
     Dates: start: 20160701, end: 20160722
  3. COLCRYS [Suspect]
     Active Substance: COLCHICINE
     Dosage: 0.9 MG, QD
     Route: 048
     Dates: start: 20160723
  4. COLCRYS [Suspect]
     Active Substance: COLCHICINE
     Dosage: 0.9 MG, QD
     Route: 048
     Dates: start: 20160517, end: 20160630

REACTIONS (4)
  - Anxiety [Not Recovered/Not Resolved]
  - Inappropriate schedule of drug administration [Recovered/Resolved]
  - Drug ineffective [Unknown]
  - Feeling jittery [Not Recovered/Not Resolved]

NARRATIVE: CASE EVENT DATE: 20160413
